FAERS Safety Report 6665164-8 (Version None)
Quarter: 2010Q2

REPORT INFORMATION
  Report Type: 
  Country: None (occurrence: None)
  Receive Date: 20100402
  Receipt Date: 20100322
  Transmission Date: 20101027
  Serious: Yes (Other)
  Sender: FDA-Public Use
  Company Number: IT-BRISTOL-MYERS SQUIBB COMPANY-15028780

PATIENT
  Age: 49 Year
  Sex: Male

DRUGS (9)
  1. ATAZANAVIR [Suspect]
     Indication: HIV INFECTION
  2. DIDANOSINE [Suspect]
     Indication: HIV INFECTION
  3. EFAVIRENZ [Suspect]
     Indication: HIV INFECTION
  4. STAVUDINE [Suspect]
     Indication: HIV INFECTION
  5. TENOFOVIR [Suspect]
     Indication: HIV INFECTION
  6. ZIDOVUDINE [Suspect]
     Indication: HIV INFECTION
  7. RITONAVIR [Suspect]
     Indication: HIV INFECTION
  8. SAQUINAVIR [Suspect]
     Indication: HIV INFECTION
  9. LOPINAVIR [Suspect]
     Indication: HIV INFECTION

REACTIONS (4)
  - DIARRHOEA [None]
  - HYPERBILIRUBINAEMIA [None]
  - LIPODYSTROPHY ACQUIRED [None]
  - VIROLOGIC FAILURE [None]
